FAERS Safety Report 5761674-6 (Version None)
Quarter: 2008Q2

REPORT INFORMATION
  Report Type: 
  Country: None (occurrence: None)
  Receive Date: 20080602
  Receipt Date: 20080516
  Transmission Date: 20081010
  Serious: Yes (Hospitalization)
  Sender: FDA-Public Use
  Company Number: 2008OT0107

PATIENT
  Age: 4 Year
  Sex: Female

DRUGS (1)
  1. ORAPRED ODT [Suspect]
     Indication: ASTHMA
     Dosage: NA, NA, PO
     Route: 048
     Dates: end: 20080501

REACTIONS (3)
  - LIP SWELLING [None]
  - ORAL PRURITUS [None]
  - SWOLLEN TONGUE [None]
